FAERS Safety Report 4503018-3 (Version None)
Quarter: 2004Q4

REPORT INFORMATION
  Report Type: 
  Country: None (occurrence: None)
  Receive Date: 20041117
  Receipt Date: 20041004
  Transmission Date: 20050328
  Serious: Yes (Hospitalization)
  Sender: FDA-Public Use
  Company Number: FR-BRISTOL-MYERS SQUIBB COMPANY-12720439

PATIENT
  Age: 69 Year
  Sex: Female

DRUGS (8)
  1. VINFLUNINE [Suspect]
     Indication: BREAST CANCER METASTATIC
     Dosage: MOST RECENT INFUSION WAS ON 01-JUL-04. TX DELAYED FOR 2 WKS DUE TO EVENTS.
     Route: 042
     Dates: start: 20040402
  2. DOXORUBICIN [Suspect]
     Indication: BREAST CANCER METASTATIC
     Dosage: MOST RECENT INFUSION WAS ON 01-JUL-04. TX DELAY 2 WKS DUE TO EVENTS.
     Route: 042
     Dates: start: 20040402
  3. LOGIRENE [Concomitant]
     Dosage: ONE TABLET DAILY
     Route: 048
     Dates: start: 20030101
  4. PLAVIX [Concomitant]
     Route: 048
     Dates: start: 20020101
  5. TARKA [Concomitant]
     Route: 048
     Dates: start: 20040101
  6. SEROPRAM [Concomitant]
     Route: 048
     Dates: start: 20040101
  7. EPREX [Concomitant]
     Route: 058
     Dates: start: 20040625
  8. ZANIDIP [Concomitant]
     Route: 048
     Dates: start: 20040101

REACTIONS (10)
  - APLASIA [None]
  - ASTHENIA [None]
  - CANDIDIASIS [None]
  - CONDITION AGGRAVATED [None]
  - FEBRILE NEUTROPENIA [None]
  - GENERAL PHYSICAL HEALTH DETERIORATION [None]
  - HALLUCINATION [None]
  - PULMONARY OEDEMA [None]
  - PYREXIA [None]
  - STOMATITIS [None]
